FAERS Safety Report 11126041 (Version 1)
Quarter: 2015Q2

REPORT INFORMATION
  Report Type: Spontaneous
  Country: US (occurrence: US)
  Receive Date: 20150520
  Receipt Date: 20150520
  Transmission Date: 20150821
  Serious: Yes (Death, Other)
  Sender: FDA-Public Use
  Company Number: US-CIPLA LTD.-2015US04024

PATIENT

DRUGS (2)
  1. GEMCITABINE [Suspect]
     Active Substance: GEMCITABINE\GEMCITABINE HYDROCHLORIDE
     Indication: PANCREATIC CARCINOMA
     Dosage: 18 MG/M2
  2. GEMCITABINE [Suspect]
     Active Substance: GEMCITABINE\GEMCITABINE HYDROCHLORIDE
     Dosage: 36 MG/M2

REACTIONS (8)
  - Pancreatic carcinoma [Fatal]
  - Disease recurrence [Unknown]
  - Gastrointestinal haemorrhage [Unknown]
  - Duodenitis haemorrhagic [Unknown]
  - Melaena [Unknown]
  - Anaemia [Unknown]
  - Gastrointestinal mucosal disorder [Unknown]
  - Intestinal ischaemia [Unknown]
